FAERS Safety Report 8099410-3 (Version None)
Quarter: 2012Q1

REPORT INFORMATION
  Report Type: 
  Country: None (occurrence: None)
  Receive Date: 20120129
  Receipt Date: 20111003
  Transmission Date: 20120608
  Serious: No
  Sender: FDA-Public Use
  Company Number: US-ABBOTT-11P-163-0861468-00

PATIENT
  Sex: Female
  Weight: 118.04 kg

DRUGS (8)
  1. HUMIRA [Suspect]
     Indication: PSORIATIC ARTHROPATHY
  2. HUMIRA [Suspect]
     Indication: PSORIASIS
     Dates: start: 20101101
  3. PREDNISONE TAB [Suspect]
     Indication: PSORIASIS
     Dosage: LARGE DOSES
     Dates: start: 20100701, end: 20110501
  4. METHOTREXATE [Concomitant]
     Indication: PSORIATIC ARTHROPATHY
     Dates: start: 20100901
  5. PREDNISONE TAB [Suspect]
     Indication: PSORIATIC ARTHROPATHY
     Dosage: TAPERED DOSES
     Dates: start: 20110501, end: 20110725
  6. ESTROGENIC SUBSTANCE [Concomitant]
     Indication: HORMONE REPLACEMENT THERAPY
  7. FOLIC ACID [Concomitant]
     Indication: FOLATE DEFICIENCY
  8. METHOTREXATE [Concomitant]
     Indication: PSORIASIS
     Dates: start: 20100101

REACTIONS (6)
  - ACTIVITIES OF DAILY LIVING IMPAIRED [None]
  - DRUG INEFFECTIVE [None]
  - PSORIATIC ARTHROPATHY [None]
  - CONDITION AGGRAVATED [None]
  - INJECTION SITE PAIN [None]
  - RASH MACULO-PAPULAR [None]
